FAERS Safety Report 16052302 (Version 2)
Quarter: 2019Q2

REPORT INFORMATION
  Report Type: Spontaneous
  Country: US (occurrence: US)
  Receive Date: 20190308
  Receipt Date: 20190419
  Transmission Date: 20190711
  Serious: No
  Sender: FDA-Public Use
  Company Number: US-GLAXOSMITHKLINE-US2019042341

PATIENT
  Sex: Male
  Weight: 95.24 kg

DRUGS (1)
  1. NUCALA [Suspect]
     Active Substance: MEPOLIZUMAB
     Indication: ASTHMA
     Dosage: 100 MG, UNK
     Route: 058
     Dates: start: 20180717, end: 20180816

REACTIONS (7)
  - Asthenia [Unknown]
  - Pyrexia [Unknown]
  - Drug ineffective [Unknown]
  - Mobility decreased [Unknown]
  - Malaise [Unknown]
  - Dyspnoea [Unknown]
  - Feeling abnormal [Unknown]
